FAERS Safety Report 7506618-1 (Version None)
Quarter: 2011Q2

REPORT INFORMATION
  Report Type: 
  Country: None (occurrence: None)
  Receive Date: 20110526
  Receipt Date: 20110510
  Transmission Date: 20111010
  Serious: Yes (Other)
  Sender: FDA-Public Use
  Company Number: US-BAYER-200829324NA

PATIENT
  Sex: Male

DRUGS (37)
  1. MAGNEVIST [Suspect]
     Indication: PRODUCT USED FOR UNKNOWN INDICATION
     Dates: start: 20070615, end: 20070615
  2. MAGNEVIST [Suspect]
     Indication: POST PROCEDURAL STROKE
  3. MULTIHANCE [Suspect]
     Indication: POST PROCEDURAL STROKE
  4. LEVAQUIN [Concomitant]
  5. NEURONTIN [Concomitant]
  6. LIDEX [Concomitant]
  7. PREDNISONE [Concomitant]
  8. CALCIUM CARBONATE [Concomitant]
  9. PHOSLO [Concomitant]
  10. PROHANCE [Suspect]
     Indication: PRODUCT USED FOR UNKNOWN INDICATION
  11. LOTREL [Concomitant]
  12. NORTRIPTYLINE HCL [Concomitant]
  13. CELLCEPT [Concomitant]
  14. MULTIHANCE [Suspect]
     Indication: NUCLEAR MAGNETIC RESONANCE IMAGING
  15. MULTIHANCE [Suspect]
     Indication: PRODUCT USED FOR UNKNOWN INDICATION
  16. VALCYTE [Concomitant]
  17. ACTIGALL [Concomitant]
  18. OMNISCAN [Suspect]
     Indication: NUCLEAR MAGNETIC RESONANCE IMAGING
  19. ARANESP [Concomitant]
  20. ELAVIL [Concomitant]
  21. OMNISCAN [Suspect]
     Indication: PRODUCT USED FOR UNKNOWN INDICATION
  22. HUMULIN 70/30 [Concomitant]
  23. PROGRAF [Concomitant]
  24. ASPIRIN [Concomitant]
  25. OMNISCAN [Suspect]
     Indication: POST PROCEDURAL STROKE
  26. OPTIMARK [Suspect]
     Indication: POST PROCEDURAL STROKE
  27. PROHANCE [Suspect]
     Indication: NUCLEAR MAGNETIC RESONANCE IMAGING
  28. PROHANCE [Suspect]
     Indication: POST PROCEDURAL STROKE
  29. LAMIVUDINE [Concomitant]
  30. GADOLINIUM IN UNSPECIFIED DRUG [Suspect]
     Route: 042
     Dates: start: 20041217, end: 20041217
  31. EPIVIR [Concomitant]
  32. LYRICA [Concomitant]
  33. MAGNEVIST [Suspect]
     Indication: NUCLEAR MAGNETIC RESONANCE IMAGING
     Dosage: 20 ML (DAILY DOSE), ONCE, INTRAVENOUS
     Route: 042
     Dates: start: 20050224, end: 20050224
  34. OPTIMARK [Suspect]
     Indication: NUCLEAR MAGNETIC RESONANCE IMAGING
  35. OPTIMARK [Suspect]
     Indication: PRODUCT USED FOR UNKNOWN INDICATION
  36. PROTONIX [Concomitant]
  37. METOPROLOL TARTRATE [Concomitant]

REACTIONS (32)
  - EMOTIONAL DISTRESS [None]
  - RASH [None]
  - SKIN INDURATION [None]
  - SWELLING [None]
  - JOINT RANGE OF MOTION DECREASED [None]
  - HYPOAESTHESIA [None]
  - PAIN [None]
  - RASH PAPULAR [None]
  - POSTOPERATIVE RENAL FAILURE [None]
  - MOBILITY DECREASED [None]
  - GRANULOMA [None]
  - SKIN EROSION [None]
  - PAIN IN EXTREMITY [None]
  - BONE PAIN [None]
  - NEPHROGENIC SYSTEMIC FIBROSIS [None]
  - OEDEMA PERIPHERAL [None]
  - GAIT DISTURBANCE [None]
  - ARTHRALGIA [None]
  - ANXIETY [None]
  - GENERAL PHYSICAL HEALTH DETERIORATION [None]
  - SKIN PLAQUE [None]
  - SKIN LESION [None]
  - SKIN DISORDER [None]
  - ERYTHEMA [None]
  - INJURY [None]
  - MUSCULAR WEAKNESS [None]
  - SKIN HYPERTROPHY [None]
  - PRURITUS [None]
  - DERMATOSIS [None]
  - PEAU D'ORANGE [None]
  - SKIN HYPERPIGMENTATION [None]
  - SKIN FIBROSIS [None]
